FAERS Safety Report 9509752 (Version 2)
Quarter: 2013Q3

REPORT INFORMATION
  Report Type: Report from Study
  Country: JP (occurrence: JP)
  Receive Date: 20130909
  Receipt Date: 20130909
  Transmission Date: 20140515
  Serious: Yes (Hospitalization, Other)
  Sender: FDA-Public Use
  Company Number: JP-TEVA-320803USA

PATIENT
  Age: 35 Year
  Sex: Male

DRUGS (10)
  1. NOBELZIN [Suspect]
     Indication: HEPATO-LENTICULAR DEGENERATION
     Dosage: 150 MILLIGRAM DAILY;
     Route: 048
     Dates: start: 20091025
  2. NOBELZIN [Suspect]
     Dosage: 75 MILLIGRAM DAILY;
     Route: 048
     Dates: start: 20080624, end: 20080721
  3. NOBELZIN [Suspect]
     Dosage: 150 MILLIGRAM DAILY;
     Route: 048
     Dates: start: 20121110
  4. PYRIDOXAL PHOSPHATE [Concomitant]
     Dosage: 20 MILLIGRAM DAILY;
     Route: 048
     Dates: start: 20101006, end: 20110531
  5. PHYTOMENADIONE [Concomitant]
     Indication: HEPATO-LENTICULAR DEGENERATION
     Dosage: 10 MILLIGRAM DAILY;
     Route: 048
     Dates: start: 20101006, end: 20110531
  6. PHYTOMENADIONE [Concomitant]
     Dosage: 5 MILLIGRAM DAILY;
     Route: 048
     Dates: start: 20121110
  7. TIZANIDINE HYDROCHLORIDE [Concomitant]
     Dosage: 3 MILLIGRAM DAILY;
     Route: 048
     Dates: start: 20101006, end: 20110531
  8. QP KOWA GOLD [Concomitant]
     Route: 048
     Dates: start: 201105
  9. METALITE [Concomitant]
     Indication: HEPATO-LENTICULAR DEGENERATION
     Dosage: 1500 MILLIGRAM DAILY;
     Route: 048
     Dates: start: 20121110
  10. AKINETON [Concomitant]
     Indication: HEPATO-LENTICULAR DEGENERATION
     Dosage: 2 MILLIGRAM DAILY;
     Route: 048
     Dates: start: 20121110

REACTIONS (3)
  - Schizophrenia [Unknown]
  - Suicide attempt [Recovered/Resolved]
  - Bipolar I disorder [Recovering/Resolving]
